FAERS Safety Report 9915337 (Version 1)
Quarter: 2014Q1

REPORT INFORMATION
  Report Type: Spontaneous
  Country: US (occurrence: US)
  Receive Date: 20140221
  Receipt Date: 20140221
  Transmission Date: 20141002
  Serious: Yes (Other)
  Sender: FDA-Public Use
  Company Number: US-ROCHE-1207818

PATIENT
  Sex: Female

DRUGS (1)
  1. AVASTIN [Suspect]
     Indication: RETINAL VEIN OCCLUSION
     Route: 065
     Dates: start: 201110

REACTIONS (6)
  - Retinal oedema [Unknown]
  - Hyphaema [Unknown]
  - Open angle glaucoma [Unknown]
  - Retinal ischaemia [Unknown]
  - Glaucoma [Unknown]
  - Retinal vascular occlusion [Unknown]
